FAERS Safety Report 6392027-8 (Version None)
Quarter: 2009Q4

REPORT INFORMATION
  Report Type: 
  Country: None (occurrence: None)
  Receive Date: 20091007
  Receipt Date: 20091001
  Transmission Date: 20100525
  Serious: Yes (Death)
  Sender: FDA-Public Use
  Company Number: SE-ROCHE-659909

PATIENT

DRUGS (2)
  1. CAPECITABINE [Suspect]
     Dosage: DAY 1-14 EVERY THREE WEEKS.
     Route: 048
     Dates: start: 20080528, end: 20080603
  2. TAXOTERE [Suspect]
     Dosage: FORM: INFUSION, ON CYCLE DAY 1, 8 AND 15 OR CYCLE DAY 1 AND 8 IN AN ALTERNATING 3 WEEK SCHEDULE.
     Route: 042

REACTIONS (1)
  - MALIGNANT NEOPLASM PROGRESSION [None]
